FAERS Safety Report 15814018 (Version 1)
Quarter: 2019Q1

REPORT INFORMATION
  Report Type: Spontaneous
  Country: US (occurrence: US)
  Receive Date: 20190111
  Receipt Date: 20190111
  Transmission Date: 20190417
  Serious: No
  Sender: FDA-Public Use
  Company Number: US-JUBILANT CADISTA PHARMACEUTICALS-2018JUB00525

PATIENT
  Sex: Male
  Weight: 86.17 kg

DRUGS (12)
  1. TERAZOSIN [Suspect]
     Active Substance: TERAZOSIN\TERAZOSIN HYDROCHLORIDE
     Indication: NOCTURIA
     Dosage: 5 MG, 1X/DAY AT NIGHT
  2. CHLORTHALIDONE. [Concomitant]
     Active Substance: CHLORTHALIDONE
     Dosage: 25 MG, 1X/DAY IN THE MORNING
  3. ASPIRIN. [Concomitant]
     Active Substance: ASPIRIN
     Dosage: 81 MG, 1X/DAY AT NIGHT
  4. SIMVASTATIN. [Concomitant]
     Active Substance: SIMVASTATIN
     Dosage: 20 MG, 1X/DAY AT NIGHT
  5. PEPCID [Concomitant]
     Active Substance: FAMOTIDINE
     Dosage: UNK
  6. TERAZOSIN [Suspect]
     Active Substance: TERAZOSIN\TERAZOSIN HYDROCHLORIDE
     Indication: NOCTURIA
     Dosage: UNK
  7. TERAZOSIN [Suspect]
     Active Substance: TERAZOSIN\TERAZOSIN HYDROCHLORIDE
     Dosage: 5 MG, 2X/DAY
     Dates: start: 201812
  8. CLONIDINE. [Concomitant]
     Active Substance: CLONIDINE
     Dosage: 0.1 MG, 1X/DAY AT NIGHT
  9. FISH OIL [Concomitant]
     Active Substance: FISH OIL
     Dosage: UNK
  10. MULTIVITAMIN [Concomitant]
     Active Substance: VITAMINS
     Dosage: UNK
  11. TERAZOSIN [Suspect]
     Active Substance: TERAZOSIN\TERAZOSIN HYDROCHLORIDE
     Dosage: 5 MG, 2X/DAY
     Dates: end: 201811
  12. VALSARTAN. [Concomitant]
     Active Substance: VALSARTAN
     Dosage: 320 MG, 1X/DAY

REACTIONS (4)
  - Cervical radiculopathy [Not Recovered/Not Resolved]
  - Pollakiuria [Not Recovered/Not Resolved]
  - Blood pressure increased [Recovered/Resolved]
  - Drug ineffective [Not Recovered/Not Resolved]

NARRATIVE: CASE EVENT DATE: 2018
